FAERS Safety Report 6828218-9 (Version None)
Quarter: 2010Q3

REPORT INFORMATION
  Report Type: 
  Country: None (occurrence: None)
  Receive Date: 20100709
  Receipt Date: 20070201
  Transmission Date: 20110219
  Serious: No
  Sender: FDA-Public Use
  Company Number: US-PFIZER INC-2007009422

PATIENT
  Sex: Female
  Weight: 61.23 kg

DRUGS (4)
  1. CHANTIX [Suspect]
     Indication: SMOKING CESSATION THERAPY
     Route: 048
     Dates: start: 20070128
  2. VITAMINS [Concomitant]
  3. SUDAFED 12 HOUR [Concomitant]
  4. MUCINEX [Concomitant]

REACTIONS (1)
  - PHOTOPSIA [None]
